FAERS Safety Report 5116826-5 (Version None)
Quarter: 2006Q3

REPORT INFORMATION
  Report Type: 
  Country: None (occurrence: None)
  Receive Date: 20060928
  Receipt Date: 20060918
  Transmission Date: 20061208
  Serious: Yes (Hospitalization)
  Sender: FDA-Public Use
  Company Number: US-ABBOTT-06P-163-0344141-00

PATIENT
  Sex: Male

DRUGS (9)
  1. BIAXIN [Suspect]
     Indication: HELICOBACTER INFECTION
     Route: 048
     Dates: start: 20060824, end: 20060902
  2. PREVPAC [Suspect]
     Indication: HELICOBACTER INFECTION
     Route: 048
     Dates: start: 20060824, end: 20060902
  3. VYTORIN [Interacting]
     Indication: BLOOD CHOLESTEROL INCREASED
     Dosage: 10/40
     Route: 048
     Dates: start: 20060801
  4. COLCHICINE [Concomitant]
     Indication: GOUT
     Route: 048
     Dates: start: 20060801
  5. INSULIN GLARGINE [Concomitant]
     Indication: DIABETES MELLITUS
     Route: 058
  6. GLUCOPHAGE XR [Concomitant]
     Indication: DIABETES MELLITUS
     Route: 048
  7. FLOMAX [Concomitant]
     Indication: HYPERTENSION
     Route: 048
  8. LISINOPRIL [Concomitant]
     Indication: HYPERTENSION
     Route: 048
  9. ASPIRIN [Concomitant]
     Indication: THROMBOSIS PROPHYLAXIS
     Route: 048
     Dates: start: 20010101

REACTIONS (6)
  - BLOOD CREATINE PHOSPHOKINASE INCREASED [None]
  - DIARRHOEA [None]
  - DRUG INTERACTION [None]
  - FUNGUS STOOL IDENTIFIED [None]
  - HEPATIC ENZYME INCREASED [None]
  - MYOPATHY [None]
